FAERS Safety Report 13025650 (Version 1)
Quarter: 2016Q4

REPORT INFORMATION
  Report Type: Spontaneous
  Country: JP (occurrence: JP)
  Receive Date: 20161214
  Receipt Date: 20161214
  Transmission Date: 20170207
  Serious: Yes (Death, Other)
  Sender: FDA-Public Use
  Company Number: JP-ROCHE-1830034

PATIENT
  Age: 63 Year
  Sex: Male
  Weight: 52 kg

DRUGS (9)
  1. DECADRON [Concomitant]
     Active Substance: DEXAMETHASONE
     Indication: PROPHYLAXIS OF NAUSEA AND VOMITING
     Route: 048
     Dates: start: 20160805, end: 20160807
  2. NEXIUM [Concomitant]
     Active Substance: ESOMEPRAZOLE MAGNESIUM
     Indication: PROPHYLAXIS
     Route: 048
     Dates: start: 20160805, end: 20160823
  3. TS-1 [Concomitant]
     Active Substance: GIMERACIL\OTERACIL\TEGAFUR
     Indication: RECTAL CANCER
     Route: 048
     Dates: start: 20160106, end: 20160309
  4. AVASTIN [Suspect]
     Active Substance: BEVACIZUMAB
     Dosage: TREATMENT LINE: 1ST COMPLETED TREATMENT CYCLE NUMBER: 9
     Route: 041
     Dates: start: 20160406, end: 20160805
  5. EMEND [Concomitant]
     Active Substance: APREPITANT
     Indication: PROPHYLAXIS OF NAUSEA AND VOMITING
     Route: 048
     Dates: start: 20160805, end: 201608
  6. AVASTIN [Suspect]
     Active Substance: BEVACIZUMAB
     Indication: RECTAL CANCER
     Dosage: TREATMENT LINE 1
     Route: 041
     Dates: start: 20160106, end: 20160309
  7. OXALIPLATIN. [Concomitant]
     Active Substance: OXALIPLATIN
     Indication: RECTAL CANCER
     Route: 041
     Dates: start: 20160106, end: 20160323
  8. TS-1 [Concomitant]
     Active Substance: GIMERACIL\OTERACIL\TEGAFUR
     Indication: RECTAL CANCER
     Dosage: COMPLETED TREATMENT CYCLE NUMBER: 9
     Route: 048
     Dates: start: 20160406, end: 20160805
  9. EMEND [Concomitant]
     Active Substance: APREPITANT
     Route: 048
     Dates: start: 201608, end: 20160807

REACTIONS (10)
  - Hepatic enzyme increased [Unknown]
  - Jaundice [Unknown]
  - Malignant ascites [Fatal]
  - Peritonitis [Unknown]
  - Gastrointestinal perforation [Fatal]
  - Ileus [Unknown]
  - Gastrointestinal obstruction [Unknown]
  - Small intestinal stenosis [Unknown]
  - Malignant pleural effusion [Fatal]
  - Internal hernia [Unknown]

NARRATIVE: CASE EVENT DATE: 20160822
